FAERS Safety Report 5130031-8 (Version None)
Quarter: 2006Q4

REPORT INFORMATION
  Report Type: 
  Country: None (occurrence: None)
  Receive Date: 20061012
  Receipt Date: 20061004
  Transmission Date: 20070319
  Serious: Yes (Other)
  Sender: FDA-Public Use
  Company Number: 2006-05265

PATIENT
  Age: 52 Year
  Sex: Male

DRUGS (1)
  1. TESTOSTERONE CYPIONATE [Suspect]
     Indication: HYPOGONADISM
     Dosage: 500 MG, MONTHLY, INTRAVENOUS
     Route: 042

REACTIONS (3)
  - BLOOD TESTOSTERONE INCREASED [None]
  - CHORIORETINOPATHY [None]
  - DRUG DISPENSING ERROR [None]
